FAERS Safety Report 5272621-8 (Version None)
Quarter: 2007Q1

REPORT INFORMATION
  Report Type: 
  Country: None (occurrence: None)
  Receive Date: 20070320
  Receipt Date: 20070320
  Transmission Date: 20070707
  Serious: Yes (Other)
  Sender: FDA-Public Use
  Company Number: None

PATIENT
  Age: 27 Year
  Sex: Female
  Weight: 77.1115 kg

DRUGS (2)
  1. RISPERDAL [Suspect]
     Indication: SCHIZOPHRENIA
     Dosage: 25-55 MILLAGRAMS EVER 2 WEEKS IV
     Route: 042
     Dates: start: 20060701, end: 20070131
  2. COGENTIN [Suspect]
     Indication: RESTLESSNESS
     Dosage: 3 A DAY 3 A DAY PO
     Route: 048
     Dates: start: 20060701, end: 20060901

REACTIONS (4)
  - STOMATITIS [None]
  - TARDIVE DYSKINESIA [None]
  - VISUAL DISTURBANCE [None]
  - WEIGHT INCREASED [None]
